FAERS Safety Report 5948633-5 (Version None)
Quarter: 2008Q4

REPORT INFORMATION
  Report Type: 
  Country: None (occurrence: None)
  Receive Date: 20081111
  Receipt Date: 20081105
  Transmission Date: 20090506
  Serious: Yes (Disabling)
  Sender: FDA-Public Use
  Company Number: US-MERCK-0810USA02175

PATIENT
  Age: 8 Year
  Sex: Male

DRUGS (3)
  1. SINGULAIR [Suspect]
     Indication: ASTHMA
     Route: 048
  2. ALBUTEROL [Concomitant]
     Route: 065
  3. FLOVENT [Concomitant]
     Route: 065

REACTIONS (2)
  - CRYING [None]
  - DEPRESSION [None]
